FAERS Safety Report 20505956 (Version 1)
Quarter: 2022Q1

REPORT INFORMATION
  Report Type: Spontaneous
  Country: US (occurrence: None)
  Receive Date: 20220222
  Receipt Date: 20220222
  Transmission Date: 20220423
  Serious: Yes (Hospitalization)
  Sender: FDA-Public Use
  Company Number: None

PATIENT
  Sex: Male

DRUGS (8)
  1. VYNDAQEL [Suspect]
     Active Substance: TAFAMIDIS MEGLUMINE
     Indication: Cardiomyopathy
     Dosage: FREQUENCY : DAILY; (80 MG- 4 CAPSULES)?
     Route: 048
     Dates: start: 20200205
  2. AMIODARONE [Concomitant]
     Active Substance: AMIODARONE
  3. ELIQUIS [Concomitant]
     Active Substance: APIXABAN
  4. METOPROLOL TARTRATE [Concomitant]
     Active Substance: METOPROLOL TARTRATE
  5. OMEGA-3 ACIDS [Concomitant]
     Active Substance: OMEGA-3 FATTY ACIDS
  6. PANTOPRAZOLE [Concomitant]
     Active Substance: PANTOPRAZOLE
  7. POTASSIUM POW CHLORIDE [Concomitant]
  8. TAMSULOSIN [Concomitant]
     Active Substance: TAMSULOSIN

REACTIONS (1)
  - Hospitalisation [None]
